FAERS Safety Report 4910290-4 (Version None)
Quarter: 2006Q1

REPORT INFORMATION
  Report Type: 
  Country: None (occurrence: None)
  Receive Date: 20060213
  Receipt Date: 20050804
  Transmission Date: 20060701
  Serious: Yes (Hospitalization)
  Sender: FDA-Public Use
  Company Number: US-MERCK-0508USA01284

PATIENT
  Age: 57 Year
  Sex: Female
  Weight: 74 kg

DRUGS (1)
  1. VIOXX [Suspect]
     Indication: ARTHRITIS
     Route: 048
     Dates: start: 20011212, end: 20040828

REACTIONS (11)
  - ACUTE MYOCARDIAL INFARCTION [None]
  - ARTERIOSCLEROSIS [None]
  - CHEST PAIN [None]
  - CORONARY ARTERY OCCLUSION [None]
  - CORONARY OSTIAL STENOSIS [None]
  - DIFFERENTIAL WHITE BLOOD CELL COUNT ABNORMAL [None]
  - FINGER DEFORMITY [None]
  - HEART RATE INCREASED [None]
  - PYREXIA [None]
  - VISION BLURRED [None]
  - WHITE BLOOD CELL COUNT DECREASED [None]
